FAERS Safety Report 4758332-3 (Version None)
Quarter: 2005Q3

REPORT INFORMATION
  Report Type: 
  Country: None (occurrence: None)
  Receive Date: 20050826
  Receipt Date: 20050512
  Transmission Date: 20060218
  Serious: No
  Sender: FDA-Public Use
  Company Number: WAES 0505USA01627

PATIENT
  Age: 71 Year
  Sex: Female

DRUGS (10)
  1. ZETIA [Suspect]
     Indication: BLOOD CHOLESTEROL INCREASED
     Dosage: 10 MG/DAILY/PO
     Route: 048
     Dates: start: 20050412
  2. CALAN [Suspect]
     Dates: end: 20050510
  3. AMBIEN [Concomitant]
  4. LEVOXYL [Concomitant]
  5. NEURONTIN [Concomitant]
  6. XANAX [Concomitant]
  7. ZOLOFT [Concomitant]
  8. CLONIDINE [Concomitant]
  9. FOLIC ACID [Concomitant]
  10. HYDROCODONE BITARTRATE [Concomitant]

REACTIONS (1)
  - PALPITATIONS [None]
